FAERS Safety Report 6204907-4 (Version None)
Quarter: 2009Q2

REPORT INFORMATION
  Report Type: 
  Country: None (occurrence: None)
  Receive Date: 20090526
  Receipt Date: 20090317
  Transmission Date: 20091009
  Serious: Yes (Other)
  Sender: FDA-Public Use
  Company Number: CA-000099

PATIENT
  Age: 28 Year
  Sex: Male

DRUGS (1)
  1. MINIRIN [Suspect]
     Indication: DRUG USE FOR UNKNOWN INDICATION
     Dosage: 0.3 MG ORAL
     Route: 048
     Dates: start: 20090309, end: 20090315

REACTIONS (1)
  - LOSS OF CONSCIOUSNESS [None]
